FAERS Safety Report 4814377-6 (Version None)
Quarter: 2005Q4

REPORT INFORMATION
  Report Type: 
  Country: None (occurrence: None)
  Receive Date: 20051027
  Receipt Date: 20051027
  Transmission Date: 20060501
  Serious: Yes (Life-Threatening, Hospitalization)
  Sender: FDA-Public Use
  Company Number: None

PATIENT
  Age: 58 Year
  Sex: Male
  Weight: 92 kg

DRUGS (1)
  1. AMIFOSTINE [Suspect]
     Indication: RADIOTHERAPY
     Dates: start: 20051012, end: 20051023

REACTIONS (1)
  - DRUG HYPERSENSITIVITY [None]
